FAERS Safety Report 4712972-6 (Version None)
Quarter: 2005Q3

REPORT INFORMATION
  Report Type: 
  Country: None (occurrence: None)
  Receive Date: 20050712
  Receipt Date: 20050712
  Transmission Date: 20060218
  Serious: Yes (Hospitalization)
  Sender: FDA-Public Use
  Company Number: None

PATIENT
  Age: 70 Year
  Sex: Male

DRUGS (1)
  1. ENOXAPARIN SODIUM [Suspect]
     Dosage: TWICE A DAY
     Dates: start: 20050414, end: 20050425

REACTIONS (3)
  - ABDOMINAL PAIN [None]
  - MASS [None]
  - POST PROCEDURAL HAEMATOMA [None]
